FAERS Safety Report 21110013 (Version 2)
Quarter: 2022Q4

REPORT INFORMATION
  Report Type: Report from Study
  Country: DE (occurrence: None)
  Receive Date: 20220721
  Receipt Date: 20221007
  Transmission Date: 20230113
  Serious: Yes (Hospitalization)
  Sender: FDA-Public Use
  Company Number: DE-ROCHE-3140561

PATIENT
  Age: 76 Year
  Sex: Female
  Weight: 58.4 kg

DRUGS (14)
  1. PERTUZUMAB [Suspect]
     Active Substance: PERTUZUMAB
     Indication: Breast cancer metastatic
     Dosage: DATE OF LAST DOSE PRIOR TO SAE/AESI: 21/APR/2022
     Route: 042
     Dates: start: 20200416
  2. TRASTUZUMAB [Suspect]
     Active Substance: TRASTUZUMAB
     Indication: Breast cancer metastatic
     Dosage: DATE OF LAST DOSE OF TRASTUZUMAB PRIOR TO SAE/AESI: 31/MAR/2022
     Route: 041
     Dates: start: 20200416
  3. RIBOCICLIB [Suspect]
     Active Substance: RIBOCICLIB
     Indication: Breast cancer metastatic
     Dosage: ON 18/FEB/2021, SHE RECEIVED THE LAST DOSE PRIOR TO SAE/AESI.
     Route: 048
     Dates: start: 20200417
  4. CHOLECALCIFEROL [Concomitant]
     Active Substance: CHOLECALCIFEROL
     Dosage: 20000 I.E
  5. DEXAMETHASONE [Concomitant]
     Active Substance: DEXAMETHASONE
     Dates: start: 20200416, end: 20220331
  6. EZETIMIBE [Concomitant]
     Active Substance: EZETIMIBE
  7. FOSFOMYCIN [Concomitant]
     Active Substance: FOSFOMYCIN
  8. HYDROCHLOROTHIAZIDE [Concomitant]
     Active Substance: HYDROCHLOROTHIAZIDE
  9. OPIPRAMOL [Concomitant]
     Active Substance: OPIPRAMOL
  10. PANTOPRAZOLE [Concomitant]
     Active Substance: PANTOPRAZOLE
  11. PREDNISOLONE [Concomitant]
     Active Substance: PREDNISOLONE
  12. PREGABALIN [Concomitant]
     Active Substance: PREGABALIN
  13. SERTRALINE [Concomitant]
     Active Substance: SERTRALINE HYDROCHLORIDE
  14. CLEMASTINE FUMARATE [Concomitant]
     Active Substance: CLEMASTINE FUMARATE
     Dates: start: 20200416, end: 20220331

REACTIONS (1)
  - General physical health deterioration [Not Recovered/Not Resolved]

NARRATIVE: CASE EVENT DATE: 20220712
